FAERS Safety Report 5246380-9 (Version None)
Quarter: 2007Q1

REPORT INFORMATION
  Report Type: 
  Country: None (occurrence: None)
  Receive Date: 20070222
  Receipt Date: 20070222
  Transmission Date: 20070707
  Serious: Yes (Life-Threatening)
  Sender: FDA-Public Use
  Company Number: None

PATIENT
  Sex: Female
  Weight: 90.7194 kg

DRUGS (4)
  1. PROAIR HFA [Suspect]
     Indication: ASTHMA
  2. ACCOLATE [Concomitant]
  3. BECONASE AQ [Concomitant]
  4. PULMICORT [Concomitant]

REACTIONS (7)
  - BRONCHOSPASM [None]
  - DRUG INEFFECTIVE [None]
  - DYSPNOEA [None]
  - FEAR [None]
  - NERVOUSNESS [None]
  - OBSTRUCTIVE AIRWAYS DISORDER [None]
  - PAIN IN EXTREMITY [None]
